FAERS Safety Report 9449248 (Version 3)
Quarter: 2013Q4

REPORT INFORMATION
  Report Type: Spontaneous
  Country: US (occurrence: US)
  Receive Date: 20130808
  Receipt Date: 20131122
  Transmission Date: 20140711
  Serious: Yes (Death, Hospitalization)
  Sender: FDA-Public Use
  Company Number: US-GLAXOSMITHKLINE-A1036659A

PATIENT
  Age: 63 Year
  Sex: Male

DRUGS (1)
  1. FLOLAN [Suspect]
     Indication: PULMONARY ARTERIAL HYPERTENSION
     Dosage: 45NGKM CONTINUOUS
     Route: 042
     Dates: start: 19971010

REACTIONS (3)
  - Investigation [Unknown]
  - Malaise [Not Recovered/Not Resolved]
  - Death [Fatal]
